FAERS Safety Report 7978585-8 (Version None)
Quarter: 2011Q4

REPORT INFORMATION
  Report Type: 
  Country: None (occurrence: None)
  Receive Date: 20111206
  Receipt Date: 20111118
  Transmission Date: 20120403
  Serious: Yes (Disabling, Other)
  Sender: FDA-Public Use
  Company Number: 087-21880-11112820

PATIENT
  Age: 54 Year
  Sex: Male

DRUGS (30)
  1. BACTRAMIN (BACTRIM) (TABLETS) [Concomitant]
  2. LAXOBERON (SODIUM PICOSULFATE) (DROPS) [Concomitant]
  3. PYRINAZIN (PARACETAMOL) (UNKNOWN) [Concomitant]
  4. LANSOPRAZOLE [Concomitant]
  5. ITRACONAZOLE [Concomitant]
  6. FENTOS TAPE (FENTANYL CITRATE) (POULTICE OR PATCH) [Concomitant]
  7. SOLITA-T3 (SOLITA-T3 INJECTION) (INJECTION) [Concomitant]
  8. GLYCERIN (GLYCEROL) (UNKNOWN) [Concomitant]
  9. MOHRUS TAPE (KETOPROFEN) (POULTICE OR PATCH) [Concomitant]
  10. LENADEX (TABLETS) [Suspect]
     Indication: MULTIPLE MYELOMA
     Dosage: SEE IMAGE
     Route: 048
     Dates: start: 20110519, end: 20110522
  11. LENADEX (TABLETS) [Suspect]
     Indication: MULTIPLE MYELOMA
     Dosage: SEE IMAGE
     Route: 048
     Dates: start: 20110617, end: 20110620
  12. LENADEX (TABLETS) [Suspect]
     Indication: MULTIPLE MYELOMA
     Dosage: SEE IMAGE
     Route: 048
     Dates: start: 20110625, end: 20110628
  13. LENADEX (TABLETS) [Suspect]
     Indication: MULTIPLE MYELOMA
     Dosage: SEE IMAGE
     Route: 048
     Dates: start: 20110703, end: 20110706
  14. LENADEX (TABLETS) [Suspect]
     Indication: MULTIPLE MYELOMA
     Dosage: SEE IMAGE
     Route: 048
     Dates: start: 20110812, end: 20110815
  15. LENADEX (TABLETS) [Suspect]
     Indication: MULTIPLE MYELOMA
     Dosage: SEE IMAGE
     Route: 048
     Dates: start: 20110604, end: 20110607
  16. LENADEX (TABLETS) [Suspect]
     Indication: MULTIPLE MYELOMA
     Dosage: SEE IMAGE
     Route: 048
     Dates: start: 20110731, end: 20110803
  17. LENADEX (TABLETS) [Suspect]
     Indication: MULTIPLE MYELOMA
     Dosage: SEE IMAGE
     Route: 048
     Dates: start: 20110527, end: 20110530
  18. LENADEX (TABLETS) [Suspect]
     Indication: MULTIPLE MYELOMA
     Dosage: SEE IMAGE
     Route: 048
     Dates: start: 20110715, end: 20110718
  19. LENADEX (TABLETS) [Suspect]
     Indication: MULTIPLE MYELOMA
     Dosage: SEE IMAGE
     Route: 048
     Dates: start: 20110723, end: 20110726
  20. NEUFAN (ALLOPURINOL) (CAPSULES) [Concomitant]
  21. SOLITA-T NO.1 (SOLITA-T1 INJECTION) (INJECTION) [Concomitant]
  22. PURSENNID (SENNA LEAF) (TABLETS) [Concomitant]
  23. REVLIMID [Suspect]
     Indication: MULTIPLE MYELOMA
     Dosage: SEE IMAGE
     Route: 048
     Dates: start: 20110715, end: 20110804
  24. REVLIMID [Suspect]
     Indication: MULTIPLE MYELOMA
     Dosage: SEE IMAGE
     Route: 048
     Dates: start: 20110812, end: 20110817
  25. REVLIMID [Suspect]
     Indication: MULTIPLE MYELOMA
     Dosage: SEE IMAGE
     Route: 048
     Dates: start: 20110519, end: 20110608
  26. REVLIMID [Suspect]
     Indication: MULTIPLE MYELOMA
     Dosage: SEE IMAGE
     Route: 048
     Dates: start: 20110617, end: 20110707
  27. MAGMITT (MAGNESIUM OXIDE) (TABLETS) [Concomitant]
  28. MEYLON (SODIUM BICARBONATE) (INJECTION) [Concomitant]
  29. LACTEC (LACTEC) (INJECTION) [Concomitant]
  30. EPOGIN (EPOETIN BETA) (INJECTION) [Concomitant]

REACTIONS (9)
  - HYPOXIA [None]
  - DIABETES MELLITUS [None]
  - HEPATIC FUNCTION ABNORMAL [None]
  - WEIGHT DECREASED [None]
  - THROMBOCYTOPENIA [None]
  - DIARRHOEA [None]
  - MELAENA [None]
  - RESTLESSNESS [None]
  - ATRIAL FIBRILLATION [None]
